FAERS Safety Report 9181379 (Version 5)
Quarter: 2013Q4

REPORT INFORMATION
  Report Type: Spontaneous
  Country: US (occurrence: US)
  Receive Date: 20130322
  Receipt Date: 20131218
  Transmission Date: 20140711
  Serious: Yes (Hospitalization, Other)
  Sender: FDA-Public Use
  Company Number: US-009507513-1303USA009725

PATIENT
  Sex: Female
  Weight: 59.86 kg

DRUGS (6)
  1. FOSAMAX [Suspect]
     Indication: OSTEOPOROSIS
     Dosage: 10 MG, QD
     Route: 048
     Dates: start: 1999
  2. FOSAMAX [Suspect]
     Dosage: 70 MG, QW
     Route: 048
     Dates: end: 200810
  3. ALENDRONATE SODIUM [Suspect]
     Indication: OSTEOPOROSIS
     Dosage: 70 MG, QW
     Route: 048
     Dates: start: 200810, end: 200906
  4. PREVACID [Concomitant]
     Dosage: UNK
     Dates: start: 1990, end: 2011
  5. CORTICOSTEROIDS (UNSPECIFIED) [Concomitant]
     Dosage: UNK
     Dates: start: 2000, end: 2012
  6. VALSARTAN [Concomitant]
     Indication: HYPERTENSION
     Dosage: 160 MG, QD
     Route: 048

REACTIONS (37)
  - Femur fracture [Recovered/Resolved]
  - Intramedullary rod insertion [Unknown]
  - Femur fracture [Recovered/Resolved]
  - Removal of internal fixation [Unknown]
  - Intramedullary rod insertion [Unknown]
  - Knee arthroplasty [Unknown]
  - Post procedural stroke [Unknown]
  - Road traffic accident [Unknown]
  - Arthritis [Unknown]
  - Fall [Unknown]
  - Anaemia [Unknown]
  - Depression [Unknown]
  - Hysterectomy [Unknown]
  - Cataract operation [Unknown]
  - Syncope [Unknown]
  - Haemorrhagic anaemia [Unknown]
  - Rotator cuff syndrome [Unknown]
  - Anaemia of chronic disease [Unknown]
  - Heterotaxia [Unknown]
  - Dextrocardia [Unknown]
  - Foot fracture [Unknown]
  - Spinal column injury [Unknown]
  - Intervertebral disc degeneration [Unknown]
  - Osteoarthritis [Unknown]
  - Ligament sprain [Unknown]
  - Contusion [Unknown]
  - Spinal compression fracture [Unknown]
  - Renal neoplasm [Unknown]
  - Dermatitis [Unknown]
  - Lumbar radiculopathy [Unknown]
  - Fatigue [Unknown]
  - Fall [Unknown]
  - Bursitis [Unknown]
  - Insomnia [Unknown]
  - Pain in extremity [Unknown]
  - Back pain [Not Recovered/Not Resolved]
  - Vertigo [Unknown]
